FAERS Safety Report 9685850 (Version 2)
Quarter: 2013Q4

REPORT INFORMATION
  Report Type: Spontaneous
  Country: JP (occurrence: JP)
  Receive Date: 20131113
  Receipt Date: 20131223
  Transmission Date: 20140711
  Serious: Yes (Life-Threatening, Hospitalization, Other)
  Sender: FDA-Public Use
  Company Number: JP-BAYER-2013-135284

PATIENT
  Age: 65 Year
  Sex: Male
  Weight: 54 kg

DRUGS (8)
  1. STIVARGA [Suspect]
     Indication: RECTAL CANCER
     Dosage: 160 MG, QD ON FOR 3 WEEKS AND OFF FOR 1 WEEK
     Route: 048
     Dates: start: 20130911, end: 20131001
  2. LANDSEN [Concomitant]
     Indication: RECTAL CANCER
     Dosage: DAILY DOSE 0.5 MG
     Route: 048
  3. FERROMIA [Concomitant]
     Indication: RECTAL CANCER
     Dosage: DAILY DOSE 100 MG
     Route: 048
  4. LYRICA [Concomitant]
     Indication: RECTAL CANCER
     Dosage: DAILY DOSE 150 MG
     Route: 048
  5. PROTECADIN [Concomitant]
     Indication: PROPHYLAXIS
     Dosage: DAILY DOSE 20 MG
     Route: 048
  6. METHYCOBAL [Concomitant]
     Indication: RECTAL CANCER
     Dosage: DAILY DOSE 1500 ?G
     Route: 048
  7. ADALAT CR [Concomitant]
     Dosage: DAILY DOSE 20 MG
     Route: 048
  8. MIYA BM [Concomitant]
     Indication: DYSBACTERIOSIS
     Dosage: UNK
     Route: 048

REACTIONS (5)
  - Pyrexia [Recovering/Resolving]
  - Decreased appetite [Recovered/Resolved]
  - Renal impairment [Recovered/Resolved]
  - Hepatic function abnormal [Recovered/Resolved]
  - Dehydration [Recovered/Resolved]
